FAERS Safety Report 7842938-9 (Version None)
Quarter: 2011Q4

REPORT INFORMATION
  Report Type: 
  Country: None (occurrence: None)
  Receive Date: 20111025
  Receipt Date: 20111017
  Transmission Date: 20120403
  Serious: Yes (Death, Hospitalization)
  Sender: FDA-Public Use
  Company Number: US-AMGEN-USASP2011053860

PATIENT
  Age: 79 Year
  Sex: Female

DRUGS (5)
  1. PROCRIT [Suspect]
     Dosage: 2000 IU, UNK
  2. PROCRIT [Suspect]
     Dosage: 10000 UNK, UNK
  3. PROCRIT [Suspect]
  4. PROCRIT [Suspect]
     Dosage: 3000 IU, UNK
  5. PROCRIT [Suspect]
     Indication: RENAL FAILURE
     Dosage: 20000 IU, UNK
     Dates: start: 20100201

REACTIONS (3)
  - HOSPITALISATION [None]
  - DEATH [None]
  - PERIPHERAL ISCHAEMIA [None]
